FAERS Safety Report 7024941-4 (Version None)
Quarter: 2010Q4

REPORT INFORMATION
  Report Type: 
  Country: None (occurrence: None)
  Receive Date: 20101001
  Receipt Date: 20100921
  Transmission Date: 20110411
  Serious: Yes (Hospitalization)
  Sender: FDA-Public Use
  Company Number: GR-GILEAD-E2B_00000870

PATIENT
  Age: 53 Year
  Sex: Female

DRUGS (7)
  1. AMBRISENTAN [Suspect]
     Indication: PULMONARY HYPERTENSION
     Route: 065
     Dates: start: 20100521, end: 20100909
  2. EXJADE [Suspect]
     Indication: THALASSAEMIA BETA
     Route: 065
     Dates: start: 20091120, end: 20100909
  3. FILICINE [Concomitant]
     Indication: PRODUCT USED FOR UNKNOWN INDICATION
     Route: 065
     Dates: end: 20100909
  4. LASIX [Concomitant]
     Indication: PRODUCT USED FOR UNKNOWN INDICATION
     Route: 065
     Dates: end: 20100909
  5. ONE-ALPHA [Concomitant]
     Indication: PRODUCT USED FOR UNKNOWN INDICATION
     Route: 065
     Dates: end: 20100909
  6. MEGA-CALCIUM [Concomitant]
     Indication: PRODUCT USED FOR UNKNOWN INDICATION
     Route: 065
     Dates: end: 20100909
  7. SINTROM [Concomitant]
     Indication: PRODUCT USED FOR UNKNOWN INDICATION
     Route: 065
     Dates: end: 20100909

REACTIONS (4)
  - CONDITION AGGRAVATED [None]
  - GUILLAIN-BARRE SYNDROME [None]
  - HAEMOLYTIC ANAEMIA [None]
  - HYPOAESTHESIA [None]
